FAERS Safety Report 19491227 (Version 1)
Quarter: 2021Q3

REPORT INFORMATION
  Report Type: Report from Study
  Country: US (occurrence: US)
  Receive Date: 20210705
  Receipt Date: 20210705
  Transmission Date: 20211014
  Serious: Yes (Other)
  Sender: FDA-Public Use
  Company Number: US-SA-2021SA218146

PATIENT
  Age: 43 Year
  Sex: Female

DRUGS (1)
  1. DUPILUMAB [Suspect]
     Active Substance: DUPILUMAB
     Indication: ASTHMA
     Dosage: 200 MG
     Route: 058

REACTIONS (9)
  - Skin hyperpigmentation [Unknown]
  - Condition aggravated [Unknown]
  - Injection site pain [Unknown]
  - Injection site necrosis [Unknown]
  - Injection site rash [Unknown]
  - Injection site indentation [Unknown]
  - Injection site atrophy [Unknown]
  - Injection site pruritus [Unknown]
  - Skin disorder [Unknown]
